FAERS Safety Report 5759215-2 (Version None)
Quarter: 2008Q2

REPORT INFORMATION
  Report Type: 
  Country: None (occurrence: None)
  Receive Date: 20080604
  Receipt Date: 20080523
  Transmission Date: 20081010
  Serious: Yes (Other)
  Sender: FDA-Public Use
  Company Number: US-PFIZER INC-2008045174

PATIENT
  Sex: Female
  Weight: 77.272 kg

DRUGS (10)
  1. NARDIL [Suspect]
     Indication: DEPRESSION
  2. GENERAL NUTRIENTS/MINERALS/VITAMINS [Suspect]
     Dosage: TEXT:QD EVERY DAY
     Dates: start: 20080201, end: 20080513
  3. SYNTHROID [Concomitant]
  4. DEHYDROEPIANDROSTERONE [Concomitant]
  5. CRESTOR [Concomitant]
  6. PROMETRIUM [Concomitant]
  7. FOSAMAX [Concomitant]
  8. TESTOSTERONE [Concomitant]
  9. RHINOCORT [Concomitant]
  10. VITAMINS [Concomitant]

REACTIONS (2)
  - URTICARIA [None]
  - WEIGHT INCREASED [None]
